FAERS Safety Report 8560477-7 (Version None)
Quarter: 2012Q3

REPORT INFORMATION
  Report Type: 
  Country: None (occurrence: None)
  Receive Date: 20120802
  Receipt Date: 20120730
  Transmission Date: 20120928
  Serious: Yes (Other)
  Sender: FDA-Public Use
  Company Number: US-SHIRE-ALL1-2012-03663

PATIENT
  Sex: Female
  Weight: 72.562 kg

DRUGS (1)
  1. VYVANSE [Suspect]
     Indication: ATTENTION DEFICIT/HYPERACTIVITY DISORDER
     Dosage: 70 MG, 1X/DAY:QD
     Route: 048
     Dates: start: 20050101, end: 20120518

REACTIONS (4)
  - SUBCHORIONIC HAEMORRHAGE [None]
  - FEELING ABNORMAL [None]
  - NAUSEA [None]
  - FOETAL EXPOSURE DURING PREGNANCY [None]
